FAERS Safety Report 5314620-3 (Version None)
Quarter: 2007Q2

REPORT INFORMATION
  Report Type: 
  Country: None (occurrence: None)
  Receive Date: 20070502
  Receipt Date: 20070424
  Transmission Date: 20071010
  Serious: Yes (Hospitalization)
  Sender: FDA-Public Use
  Company Number: HQWYE830125APR07

PATIENT
  Sex: Female
  Weight: 64.47 kg

DRUGS (4)
  1. PREMARIN [Suspect]
     Indication: HOT FLUSH
     Route: 048
     Dates: end: 20030101
  2. PREMARIN [Suspect]
     Route: 048
  3. PREMARIN [Suspect]
     Route: 048
  4. MEDROXYPROGESTERONE ACETATE [Concomitant]
     Dosage: UNKNOWN
     Route: 065

REACTIONS (6)
  - ANOREXIA [None]
  - CHILLS [None]
  - DRUG EFFECT DECREASED [None]
  - DRUG WITHDRAWAL SYNDROME [None]
  - INSOMNIA [None]
  - WEIGHT DECREASED [None]
